FAERS Safety Report 5192531-4 (Version None)
Quarter: 2006Q4

REPORT INFORMATION
  Report Type: 
  Country: None (occurrence: None)
  Receive Date: 20061220
  Receipt Date: 20061208
  Transmission Date: 20070319
  Serious: Yes (Other)
  Sender: FDA-Public Use
  Company Number: 226142

PATIENT
  Age: 87 Year
  Sex: Female
  Weight: 46 kg

DRUGS (17)
  1. MABTHERA [Suspect]
     Indication: LYMPHOMA
     Dosage: 375 MG/M2, INTRAVENOUS
     Route: 042
     Dates: start: 20060424, end: 20060519
  2. NOOTROPYL                (PIRACETAM) [Suspect]
     Indication: CEREBROVASCULAR ACCIDENT
     Dosage: 800 MG, ORAL
     Route: 048
     Dates: end: 20060520
  3. CORDARONE [Suspect]
     Indication: ARRHYTHMIA
  4. CYCLOPHOSPHAMIDE [Concomitant]
  5. DOXORUBICIN HCL [Concomitant]
  6. VINCRISTINE [Concomitant]
  7. PREDNISOLONE [Concomitant]
  8. LASIX [Concomitant]
  9. LEVOTHYROXINE SODIUM [Concomitant]
  10. COZAAR [Concomitant]
  11. KARDEGIC (ASPIRIN DL-LYSINE) [Concomitant]
  12. LEXOMIL (BROMAZEPAM) [Concomitant]
  13. TRENTAL [Concomitant]
  14. NEXIUM [Concomitant]
  15. PRAVASTATIN [Concomitant]
  16. SOLUPRED (PREDNISOLONE) [Concomitant]
  17. NEORECORMON (EPOETIN BETA) [Concomitant]

REACTIONS (3)
  - CYTOLYTIC HEPATITIS [None]
  - DRUG INTERACTION [None]
  - RENAL FAILURE [None]
